FAERS Safety Report 17996104 (Version 1)
Quarter: 2020Q3

REPORT INFORMATION
  Report Type: Spontaneous
  Country: US (occurrence: IT)
  Receive Date: 20200708
  Receipt Date: 20200708
  Transmission Date: 20201103
  Serious: No
  Sender: FDA-Public Use
  Company Number: US-BAUSCH-BL-2020-018245

PATIENT
  Sex: Female

DRUGS (2)
  1. TIMOLOL. [Suspect]
     Active Substance: TIMOLOL
     Indication: PRODUCT USED FOR UNKNOWN INDICATION
     Dosage: RISING PHARMACEUTICAL
     Route: 065
     Dates: start: 20200510, end: 20200519
  2. TIMOPTIC?XE [Suspect]
     Active Substance: TIMOLOL MALEATE
     Indication: GLAUCOMA
     Dosage: START DATE: YEARS AGO
     Route: 065

REACTIONS (2)
  - Tendonitis [Unknown]
  - Oedema [Unknown]

NARRATIVE: CASE EVENT DATE: 2018
